FAERS Safety Report 9270512 (Version 2)
Quarter: 2013Q2

REPORT INFORMATION
  Report Type: Spontaneous
  Country: US (occurrence: US)
  Receive Date: 20130503
  Receipt Date: 20130506
  Transmission Date: 20140414
  Serious: Yes (Other)
  Sender: FDA-Public Use
  Company Number: CHPA2013US007585

PATIENT
  Age: 79 Year
  Sex: Female

DRUGS (3)
  1. PREVACID 24HR 15MG [Suspect]
     Indication: HYPERCHLORHYDRIA
     Dosage: 15 MG, BID
     Route: 048
     Dates: start: 2011
  2. PREVACID 24HR 15MG [Suspect]
     Dosage: 15 MG, QD
     Route: 048
  3. PEPCID [Concomitant]

REACTIONS (6)
  - Gastrooesophageal reflux disease [Recovered/Resolved]
  - Gastric polyps [Recovered/Resolved]
  - Off label use [Unknown]
  - Prescribed overdose [Unknown]
  - Incorrect drug administration duration [Unknown]
  - Wrong technique in drug usage process [Unknown]
